FAERS Safety Report 9669889 (Version 5)
Quarter: 2014Q4

REPORT INFORMATION
  Report Type: Report from Study
  Country: KR (occurrence: KR)
  Receive Date: 20131105
  Receipt Date: 20141224
  Transmission Date: 20150529
  Serious: No
  Sender: FDA-Public Use
  Company Number: PHHY2013KR124060

PATIENT
  Age: 32 Year
  Sex: Male

DRUGS (20)
  1. SODIUM ALGINATE [Concomitant]
     Active Substance: SODIUM ALGINATE
     Indication: MYCOTOXICOSIS
     Dosage: 120 ML, UNK
     Route: 048
     Dates: start: 20120917, end: 20120923
  2. AMN107 [Suspect]
     Active Substance: NILOTINIB
     Dosage: 400 MG, PER DAY
     Route: 048
     Dates: start: 20121017, end: 20121030
  3. GRASIN [Concomitant]
     Indication: NEUTROPENIA
     Dosage: 300 UG, UNK
     Route: 058
     Dates: start: 20120813, end: 20120813
  4. ESOMEPRAZOLE [Concomitant]
     Active Substance: ESOMEPRAZOLE
     Indication: GASTROINTESTINAL DISORDER
     Dosage: 40 MG, UNK
     Route: 042
     Dates: start: 20120917, end: 20120917
  5. PHENIRAMINE [Concomitant]
     Active Substance: PHENIRAMINE
     Dosage: 4 MG, UNK
     Route: 042
     Dates: start: 20120820, end: 20120820
  6. AMN107 [Suspect]
     Active Substance: NILOTINIB
     Dosage: 800 MG, PER DAY
     Route: 048
     Dates: start: 20120924, end: 20121016
  7. LEVOFLOXACIN. [Concomitant]
     Active Substance: LEVOFLOXACIN
     Indication: BLOOD URIC ACID
     Dosage: 500 MG, UNK
     Route: 048
     Dates: start: 20120820, end: 20120824
  8. LANSOPRAZOLE. [Concomitant]
     Active Substance: LANSOPRAZOLE
     Indication: PEPTIC ULCER
     Dosage: 60 MG, UNK
     Route: 048
     Dates: start: 20120919, end: 20121016
  9. ULTRACET [Concomitant]
     Active Substance: ACETAMINOPHEN\TRAMADOL HYDROCHLORIDE
     Indication: PAIN
     Dosage: 2175 MG, UNK
     Route: 048
     Dates: start: 20120924
  10. PHENIRAMINE [Concomitant]
     Active Substance: PHENIRAMINE
     Indication: RED BLOOD CELL COUNT
     Dosage: 4 MG, UNK
     Route: 042
     Dates: start: 20120813, end: 20120813
  11. TYLENOL [Concomitant]
     Active Substance: ACETAMINOPHEN
     Indication: PAIN
     Dosage: 650 MG, UNK
     Route: 048
     Dates: start: 20120820, end: 20120903
  12. METOCLOPRAMIDE HCL [Concomitant]
     Active Substance: METOCLOPRAMIDE HYDROCHLORIDE
     Dosage: 60 MG, UNK
     Route: 042
     Dates: start: 20120923, end: 20120926
  13. MOSAPRIDE [Concomitant]
     Active Substance: MOSAPRIDE
     Indication: DYSPNOEA
     Dosage: 15 MG, UNK
     Route: 048
     Dates: start: 20120926, end: 20121002
  14. CEFTAZIDIME. [Concomitant]
     Active Substance: CEFTAZIDIME
     Indication: ANTIBIOTIC THERAPY
     Dosage: 600 MG, UNK
     Route: 042
     Dates: start: 20120924, end: 20120926
  15. AMN107 [Suspect]
     Active Substance: NILOTINIB
     Dosage: 400 MG, PER DAY
     Route: 048
     Dates: start: 20120820, end: 20120917
  16. BOEHMITE [Concomitant]
     Indication: GASTRITIS
     Route: 048
     Dates: start: 20120917, end: 20120923
  17. AMN107 [Suspect]
     Active Substance: NILOTINIB
     Indication: CHRONIC MYELOID LEUKAEMIA
     Dosage: 800 MG, PER DAY
     Route: 048
     Dates: start: 20120802, end: 20120813
  18. AMN107 [Suspect]
     Active Substance: NILOTINIB
     Dosage: 800 MG, PER DAY
     Route: 048
     Dates: start: 20121031
  19. METOCLOPRAMIDE HCL [Concomitant]
     Active Substance: METOCLOPRAMIDE HYDROCHLORIDE
     Indication: NAUSEA
     Dosage: 60 MG, UNK
     Route: 042
     Dates: start: 20120918, end: 20120918
  20. TEPRENONE [Concomitant]
     Active Substance: TEPRENONE
     Indication: PEPTIC ULCER
     Dosage: 150 MG, UNK
     Route: 048
     Dates: start: 20120916, end: 20120917

REACTIONS (4)
  - Gastrointestinal disorder [Not Recovered/Not Resolved]
  - Constipation [Not Recovered/Not Resolved]
  - Abdominal pain [Recovered/Resolved]
  - Anal inflammation [Not Recovered/Not Resolved]

NARRATIVE: CASE EVENT DATE: 20121017
